FAERS Safety Report 6026893-2 (Version None)
Quarter: 2009Q1

REPORT INFORMATION
  Report Type: 
  Country: None (occurrence: None)
  Receive Date: 20090105
  Receipt Date: 20081230
  Transmission Date: 20090719
  Serious: Yes (Hospitalization)
  Sender: FDA-Public Use
  Company Number: US-BIOGENIDEC-2008BI025587

PATIENT
  Age: 62 Year
  Sex: Female

DRUGS (1)
  1. AVONEX [Suspect]
     Indication: MULTIPLE SCLEROSIS
     Route: 030
     Dates: start: 20070705

REACTIONS (5)
  - CEREBROVASCULAR ACCIDENT [None]
  - CYSTITIS [None]
  - HYPOTENSION [None]
  - LARGE INTESTINE PERFORATION [None]
  - MULTIPLE SCLEROSIS RELAPSE [None]
